FAERS Safety Report 15189515 (Version 1)
Quarter: 2018Q3

REPORT INFORMATION
  Report Type: Report from Study
  Country: US (occurrence: US)
  Receive Date: 20180724
  Receipt Date: 20180724
  Transmission Date: 20181010
  Serious: Yes (Hospitalization)
  Sender: FDA-Public Use
  Company Number: US-TEVA-2018-US-903257

PATIENT
  Age: 56 Year
  Sex: Female

DRUGS (1)
  1. AUSTEDO [Suspect]
     Active Substance: DEUTETRABENAZINE
     Indication: TARDIVE DYSKINESIA
     Dosage: TITRATION
     Route: 065
     Dates: start: 20180421

REACTIONS (2)
  - Drug dose omission [Unknown]
  - Oral surgery [Recovering/Resolving]

NARRATIVE: CASE EVENT DATE: 20180604
